FAERS Safety Report 23898616 (Version 1)
Quarter: 2024Q2

REPORT INFORMATION
  Report Type: Spontaneous
  Country: US (occurrence: US)
  Receive Date: 20240525
  Receipt Date: 20240525
  Transmission Date: 20240716
  Serious: No
  Sender: FDA-Public Use
  Company Number: US-TEVA-VS-3197770

PATIENT
  Sex: Female

DRUGS (5)
  1. PENICILLIN [Suspect]
     Active Substance: PENICILLIN
     Indication: Product used for unknown indication
     Route: 065
  2. fexofenadine hydrochloride (Allegra) [Concomitant]
  3. levocetirizine dihydrochloride (Xyzal) [Concomitant]
  4. diphenhydramine hydrochloride (Benadryl [Diphenhydramine Hydrochlor... [Concomitant]
  5. PEPCID [Concomitant]
     Active Substance: FAMOTIDINE

REACTIONS (1)
  - Urticaria [Unknown]
